FAERS Safety Report 7009371-3 (Version None)
Quarter: 2010Q3

REPORT INFORMATION
  Report Type: 
  Country: None (occurrence: None)
  Receive Date: 20100917
  Receipt Date: 20100909
  Transmission Date: 20110219
  Serious: Yes (Hospitalization)
  Sender: FDA-Public Use
  Company Number: CRC-10-089

PATIENT
  Age: 62 Year
  Sex: Female
  Weight: 66.14 kg

DRUGS (11)
  1. METFORMIN HYDROCHLORIDE [Suspect]
     Indication: TYPE 2 DIABETES MELLITUS
     Dosage: 500MG, TWO TABLETS DAILY
     Dates: start: 20070101, end: 20100317
  2. METFORMIN HYDROCHLORIDE [Suspect]
     Indication: TYPE 2 DIABETES MELLITUS
     Dosage: 500MG, TWO TABLETS DAILY
     Dates: start: 20100318, end: 20100329
  3. METFORMIN HYDROCHLORIDE [Suspect]
     Indication: TYPE 2 DIABETES MELLITUS
     Dosage: 500MG, TWO TABLETS DAILY
     Dates: start: 20100403
  4. STUDY DRUG (SINGLE-BLIND PLACEBO) [Suspect]
     Indication: TYPE 2 DIABETES MELLITUS
     Dosage: ORAL
     Route: 048
     Dates: start: 20100318, end: 20100329
  5. GLIMEPIRIDE [Suspect]
     Dosage: 2 MG, 2 IN ONE DAY; 4MG 1 IN ONE DAY, ORAL
     Route: 048
     Dates: start: 20070101, end: 20100317
  6. GLIMEPIRIDE [Suspect]
     Dosage: 2 MG, 2 IN ONE DAY; 4MG 1 IN ONE DAY, ORAL
     Route: 048
     Dates: start: 20100318, end: 20100329
  7. GLIMEPIRIDE [Suspect]
     Dosage: 2 MG, 2 IN ONE DAY; 4MG 1 IN ONE DAY, ORAL
     Route: 048
     Dates: start: 20100403
  8. LISINOPRIL [Concomitant]
  9. DARVOCET N-50 (ACETAMINOPHEN/PROPHENE) [Concomitant]
  10. LIALDA [Concomitant]
  11. TETANUS TOXOID [Concomitant]

REACTIONS (15)
  - BLOOD PRESSURE INCREASED [None]
  - CHEST PAIN [None]
  - FIBULA FRACTURE [None]
  - HAEMATOCRIT DECREASED [None]
  - HAEMOGLOBIN DECREASED [None]
  - LACERATION [None]
  - OCULAR HYPERAEMIA [None]
  - PAIN [None]
  - PAIN IN EXTREMITY [None]
  - RIB FRACTURE [None]
  - ROAD TRAFFIC ACCIDENT [None]
  - SKIN WARM [None]
  - SPINAL OSTEOARTHRITIS [None]
  - TIBIA FRACTURE [None]
  - VISUAL ACUITY REDUCED [None]
